FAERS Safety Report 14676283 (Version 1)
Quarter: 2018Q1

REPORT INFORMATION
  Report Type: Spontaneous
  Country: US (occurrence: US)
  Receive Date: 20180323
  Receipt Date: 20180323
  Transmission Date: 20180509
  Serious: Yes (Life-Threatening)
  Sender: FDA-Public Use
  Company Number: None

PATIENT
  Age: 80 Year
  Sex: Male
  Weight: 97.07 kg

DRUGS (9)
  1. FUROSEMIDE. [Concomitant]
     Active Substance: FUROSEMIDE
  2. VIT B [Concomitant]
     Active Substance: VITAMIN B
  3. POTASSIUM [Concomitant]
     Active Substance: POTASSIUM
  4. ADVAIR HFA [Concomitant]
     Active Substance: FLUTICASONE PROPIONATE\SALMETEROL XINAFOATE
  5. HORSE CHESTNUT [Concomitant]
     Active Substance: HORSE CHESTNUT
  6. 30 CLARITHROMYCIN 500MG [Suspect]
     Active Substance: CLARITHROMYCIN
     Indication: PNEUMONIA
     Dosage: 1 PILL EVERY 8 HRS
     Route: 048
     Dates: start: 20180307, end: 20180309
  7. VIT A + D3 [Concomitant]
  8. SAW PALMETTO [Concomitant]
     Active Substance: HERBALS\SAW PALMETTO
  9. VITAMIN E [Concomitant]
     Active Substance: .ALPHA.-TOCOPHEROL

REACTIONS (2)
  - Chest pain [None]
  - Heart rate increased [None]

NARRATIVE: CASE EVENT DATE: 20180308
